FAERS Safety Report 20329534 (Version 2)
Quarter: 2022Q1

REPORT INFORMATION
  Report Type: Spontaneous
  Country: US (occurrence: None)
  Receive Date: 20220112
  Receipt Date: 20220207
  Transmission Date: 20220423
  Serious: No
  Sender: FDA-Public Use
  Company Number: 2021A907509

PATIENT
  Sex: Male
  Weight: 65.8 kg

DRUGS (2)
  1. BYDUREON BCISE [Suspect]
     Active Substance: EXENATIDE
     Indication: Diabetes mellitus
     Dosage: 2MG ONCE EVERY 10 DAYS
     Route: 058
     Dates: start: 202106
  2. BYDUREON [Concomitant]
     Active Substance: EXENATIDE
     Indication: Diabetes mellitus
     Dosage: 2MG ONCE EVERY 10 DAYS
     Route: 058
     Dates: start: 2016, end: 202106

REACTIONS (3)
  - Injection site scar [Unknown]
  - Device delivery system issue [Unknown]
  - Needle issue [Unknown]
